FAERS Safety Report 10312743 (Version 2)
Quarter: 2014Q3

REPORT INFORMATION
  Report Type: Spontaneous
  Country: US (occurrence: US)
  Receive Date: 20140718
  Receipt Date: 20140811
  Transmission Date: 20150326
  Serious: No
  Sender: FDA-Public Use
  Company Number: US-SHIRE-US201404026

PATIENT
  Age: 11 Year
  Sex: Male
  Weight: 31.75 kg

DRUGS (9)
  1. RISPERIDONE. [Concomitant]
     Active Substance: RISPERIDONE
     Indication: ABNORMAL BEHAVIOUR
     Dosage: 1 MG, 2X/DAY:BID
     Route: 065
  2. CLONIDINE. [Concomitant]
     Active Substance: CLONIDINE
     Dosage: UNK, UNKNOWN
     Route: 065
  3. VYVANSE [Suspect]
     Active Substance: LISDEXAMFETAMINE DIMESYLATE
     Dosage: UNK UNK, UNKNOWN
     Route: 048
  4. CLONIDINE. [Concomitant]
     Active Substance: CLONIDINE
     Indication: PRODUCT USED FOR UNKNOWN INDICATION
     Dosage: 0.4 MG, UNKNOWN (PER DAY)
     Route: 065
  5. RISPERIDONE. [Concomitant]
     Active Substance: RISPERIDONE
     Indication: EMOTIONAL DISORDER
     Dosage: UNK, UNKNOWN
     Route: 065
  6. RISPERIDONE. [Concomitant]
     Active Substance: RISPERIDONE
     Dosage: 0.25 MG, 2X/DAY:BID
     Route: 065
  7. VYVANSE [Suspect]
     Active Substance: LISDEXAMFETAMINE DIMESYLATE
     Indication: ATTENTION DEFICIT/HYPERACTIVITY DISORDER
     Dosage: 40 MG, 1X/DAY:QD
     Route: 048
  8. FLUOXETINE [Concomitant]
     Active Substance: FLUOXETINE\FLUOXETINE HYDROCHLORIDE
     Indication: PRODUCT USED FOR UNKNOWN INDICATION
     Dosage: 10 MG, 1X/DAY:QD
     Route: 065
  9. CLONIDINE. [Concomitant]
     Active Substance: CLONIDINE
     Dosage: 0.1 MG, 1X/DAY:QD (NIGHTLY)
     Route: 065

REACTIONS (1)
  - Drug ineffective [Unknown]
